FAERS Safety Report 7535846-4 (Version None)
Quarter: 2011Q2

REPORT INFORMATION
  Report Type: 
  Country: None (occurrence: None)
  Receive Date: 20110609
  Receipt Date: 20110513
  Transmission Date: 20111010
  Serious: Yes (Hospitalization)
  Sender: FDA-Public Use
  Company Number: US-BAYER-2011-016007

PATIENT
  Age: 23 Year
  Sex: Female
  Weight: 88.435 kg

DRUGS (5)
  1. OXYCONTIN [Concomitant]
  2. XANAX [Concomitant]
  3. YAZ [Suspect]
     Indication: ACNE
     Dosage: UNK
     Route: 048
     Dates: start: 20070101, end: 20090101
  4. CIPROFLOXACIN HCL [Concomitant]
  5. ALBUTEROL INHALER [Concomitant]

REACTIONS (4)
  - CHOLECYSTITIS CHRONIC [None]
  - GALLBLADDER DISORDER [None]
  - CONSTIPATION [None]
  - MALAISE [None]
